FAERS Safety Report 5004458-9 (Version None)
Quarter: 2006Q2

REPORT INFORMATION
  Report Type: 
  Country: None (occurrence: None)
  Receive Date: 20060511
  Receipt Date: 20060428
  Transmission Date: 20061013
  Serious: Yes (Hospitalization, Other)
  Sender: FDA-Public Use
  Company Number: 2004059992

PATIENT
  Age: 72 Year
  Sex: Male
  Weight: 94.3482 kg

DRUGS (14)
  1. VIAGRA [Suspect]
     Indication: ERECTILE DYSFUNCTION
     Dosage: 100 MG (50 MG, AS NECESSARY), ORAL
     Route: 048
     Dates: start: 20010101
  2. LIPITOR [Suspect]
     Indication: BLOOD CHOLESTEROL INCREASED
     Dosage: ORAL
     Route: 048
     Dates: end: 20040801
  3. VALSARTAN [Concomitant]
  4. GLIPIZIDE [Concomitant]
  5. NORVASC [Concomitant]
  6. LISINOPRIL [Concomitant]
  7. ZOCOR [Concomitant]
  8. LASIX [Concomitant]
  9. TOPROL-XL [Concomitant]
  10. HALCION [Concomitant]
  11. ACETAMINOPHEN [Concomitant]
  12. MULTIVITAMIN [Concomitant]
  13. CALCIUM GLUCONATE [Concomitant]
  14. SAW PALMETTO [Concomitant]

REACTIONS (8)
  - CAROTID ARTERY OCCLUSION [None]
  - CARPAL TUNNEL DECOMPRESSION [None]
  - CORONARY ARTERY OCCLUSION [None]
  - DRUG EFFECT DECREASED [None]
  - DRUG INEFFECTIVE [None]
  - DRUG INTERACTION [None]
  - MYALGIA [None]
  - PAIN IN EXTREMITY [None]
